FAERS Safety Report 23013306 (Version 2)
Quarter: 2023Q4

REPORT INFORMATION
  Report Type: Spontaneous
  Country: US (occurrence: US)
  Receive Date: 20230930
  Receipt Date: 20231005
  Transmission Date: 20240110
  Serious: Yes (Disabling, Other)
  Sender: FDA-Public Use
  Company Number: US-SANDOZ-SDZ2023US036029

PATIENT
  Sex: Male

DRUGS (3)
  1. COSENTYX [Suspect]
     Active Substance: SECUKINUMAB
     Indication: Psoriatic arthropathy
     Dosage: 300 MG
     Route: 065
  2. METHOTREXATE [Suspect]
     Active Substance: METHOTREXATE
     Indication: Psoriatic arthropathy
     Dosage: UNK
     Route: 065
  3. SULFASALAZINE [Suspect]
     Active Substance: SULFASALAZINE
     Indication: Psoriatic arthropathy
     Dosage: 4 DF
     Route: 065

REACTIONS (7)
  - Renal impairment [Unknown]
  - Pain [Unknown]
  - Muscle spasms [Unknown]
  - Impaired work ability [Unknown]
  - Therapeutic product effect incomplete [Unknown]
  - Spinal disorder [Unknown]
  - Drug ineffective [Unknown]
